FAERS Safety Report 26101592 (Version 1)
Quarter: 2025Q4

REPORT INFORMATION
  Report Type: Spontaneous
  Country: RU (occurrence: RU)
  Receive Date: 20251128
  Receipt Date: 20251128
  Transmission Date: 20260118
  Serious: Yes (Hospitalization, Other)
  Sender: RANBAXY
  Company Number: RU-SUN PHARMACEUTICAL INDUSTRIES LTD-2025R1-538879

PATIENT
  Age: 13 Year
  Sex: Male
  Weight: 50 kg

DRUGS (1)
  1. ENALAPRIL [Suspect]
     Active Substance: ENALAPRIL
     Indication: Arrhythmogenic right ventricular dysplasia
     Dosage: 5 MILLIGRAM, QD
     Route: 065

REACTIONS (5)
  - Condition aggravated [Unknown]
  - Fibrosis [Unknown]
  - Loss of consciousness [Unknown]
  - Left ventricular dysfunction [Unknown]
  - Treatment noncompliance [Unknown]
